FAERS Safety Report 9182412 (Version 1)
Quarter: 2013Q1

REPORT INFORMATION
  Report Type: Spontaneous
  Country: US (occurrence: None)
  Receive Date: 20130321
  Receipt Date: 20130321
  Transmission Date: 20140127
  Serious: No
  Sender: FDA-Public Use
  Company Number: None

PATIENT
  Sex: Female
  Weight: 55.34 kg

DRUGS (1)
  1. ADVAIR [Suspect]
     Indication: ASTHMA
     Dates: start: 1990

REACTIONS (7)
  - Malaise [None]
  - Multiple allergies [None]
  - Lung disorder [None]
  - Asthma [None]
  - Bronchitis [None]
  - Neoplasm malignant [None]
  - Computerised tomogram abnormal [None]
